FAERS Safety Report 23644344 (Version 6)
Quarter: 2024Q3

REPORT INFORMATION
  Report Type: Spontaneous
  Country: US (occurrence: US)
  Receive Date: 20240318
  Receipt Date: 20240918
  Transmission Date: 20241017
  Serious: No
  Sender: PFIZER
  Company Number: US-PFIZER INC-202400052450

PATIENT
  Age: 11 Year
  Sex: Female
  Weight: 26.594 kg

DRUGS (1)
  1. GENOTROPIN [Suspect]
     Active Substance: SOMATROPIN
     Indication: Growth disorder
     Dosage: 1 MG, DAILY
     Dates: start: 20230710

REACTIONS (2)
  - Device leakage [Unknown]
  - Liquid product physical issue [Unknown]
